FAERS Safety Report 5109255-1 (Version None)
Quarter: 2006Q3

REPORT INFORMATION
  Report Type: 
  Country: None (occurrence: None)
  Receive Date: 20060918
  Receipt Date: 20060915
  Transmission Date: 20061208
  Serious: Yes (Death)
  Sender: FDA-Public Use
  Company Number: 008598

PATIENT
  Sex: Female

DRUGS (1)
  1. LESSINA (LEVONORGESTREL, ETHINYLESTRADIOL) TABLET, 0.1/0.02MG [Suspect]
     Indication: ORAL CONTRACEPTION
     Dosage: ORAL
     Route: 048

REACTIONS (2)
  - FOOD POISONING [None]
  - PULMONARY EMBOLISM [None]
